FAERS Safety Report 10970347 (Version 1)
Quarter: 2015Q1

REPORT INFORMATION
  Report Type: Spontaneous
  Country: US (occurrence: None)
  Receive Date: 20150330
  Receipt Date: 20150330
  Transmission Date: 20150721
  Serious: Yes (Other)
  Sender: FDA-Public Use
  Company Number: None

PATIENT
  Age: 30 Year
  Sex: Female
  Weight: 59.42 kg

DRUGS (4)
  1. RANITIDINE [Concomitant]
     Active Substance: RANITIDINE\RANITIDINE HYDROCHLORIDE
  2. ADDERALL [Suspect]
     Active Substance: AMPHETAMINE ASPARTATE\AMPHETAMINE SULFATE\DEXTROAMPHETAMINE SACCHARATE\DEXTROAMPHETAMINE SULFATE
     Indication: ATTENTION DEFICIT/HYPERACTIVITY DISORDER
     Route: 048
     Dates: start: 20150315, end: 20150326
  3. TUMS [Concomitant]
     Active Substance: CALCIUM CARBONATE
  4. PROPANOLOL [Concomitant]
     Active Substance: PROPRANOLOL HYDROCHLORIDE

REACTIONS (13)
  - Flushing [None]
  - Drug ineffective [None]
  - Product substitution issue [None]
  - Hypoaesthesia [None]
  - Product quality issue [None]
  - Disturbance in attention [None]
  - Irritability [None]
  - Memory impairment [None]
  - Hot flush [None]
  - Skin discolouration [None]
  - Social avoidant behaviour [None]
  - Poor peripheral circulation [None]
  - Peripheral coldness [None]

NARRATIVE: CASE EVENT DATE: 20150326
